FAERS Safety Report 5080338-8 (Version None)
Quarter: 2006Q3

REPORT INFORMATION
  Report Type: 
  Country: None (occurrence: None)
  Receive Date: 20060809
  Receipt Date: 20060807
  Transmission Date: 20061208
  Serious: Yes (Hospitalization, Other)
  Sender: FDA-Public Use
  Company Number: FRWYE554307AUG06

PATIENT
  Age: 80 Year
  Sex: Female

DRUGS (2)
  1. ANADVIL (IBUPROFEN, TABLET, 0) [Suspect]
     Dosage: ONE TABLET IN TOTAL ORAL
     Route: 048
     Dates: start: 20051209, end: 20051209
  2. COLLUDOL (HEXAMIDINE ISETIONATE/LIDOCAINE HYDROCHLORIDE, , 0) [Suspect]
     Dosage: ONE PULVERISATION AEROSOL
     Dates: start: 20051209, end: 20051209

REACTIONS (4)
  - APHTHOUS STOMATITIS [None]
  - DIARRHOEA [None]
  - RASH MACULO-PAPULAR [None]
  - TOXIC SKIN ERUPTION [None]
